FAERS Safety Report 11816335 (Version 1)
Quarter: 2015Q4

REPORT INFORMATION
  Report Type: Spontaneous
  Country: US (occurrence: US)
  Receive Date: 20151209
  Receipt Date: 20151209
  Transmission Date: 20160305
  Serious: No
  Sender: FDA-Public Use
  Company Number: US-BIOMARINAP-US-2014-104929

PATIENT
  Age: 27 Year
  Sex: Female
  Weight: 88.5 kg

DRUGS (1)
  1. KUVAN [Suspect]
     Active Substance: SAPROPTERIN DIHYDROCHLORIDE
     Indication: PHENYLKETONURIA
     Dosage: 20 MG/KG, QD
     Route: 048
     Dates: start: 20141201

REACTIONS (4)
  - Pyrexia [Unknown]
  - Nasal congestion [Unknown]
  - Retching [Unknown]
  - Influenza [Unknown]

NARRATIVE: CASE EVENT DATE: 20141215
